FAERS Safety Report 8596168-6 (Version None)
Quarter: 2012Q3

REPORT INFORMATION
  Report Type: 
  Country: None (occurrence: None)
  Receive Date: 20120815
  Receipt Date: 20120810
  Transmission Date: 20120928
  Serious: Yes (Death, Congenital Anomaly, Other)
  Sender: FDA-Public Use
  Company Number: US-VIIV HEALTHCARE LIMITED-A0965186B

PATIENT

DRUGS (2)
  1. COMBIVIR [Suspect]
     Indication: ANTIRETROVIRAL THERAPY
     Dosage: 2TAB PER DAY
     Route: 064
  2. KALETRA [Suspect]
     Indication: ANTIRETROVIRAL THERAPY
     Dosage: 4TAB PER DAY
     Route: 064

REACTIONS (5)
  - FOETAL DEATH [None]
  - NERVOUS SYSTEM DISORDER [None]
  - FOETAL EXPOSURE DURING PREGNANCY [None]
  - HEART DISEASE CONGENITAL [None]
  - SINGLE UMBILICAL ARTERY [None]
